FAERS Safety Report 15988076 (Version 1)
Quarter: 2019Q1

REPORT INFORMATION
  Report Type: Spontaneous
  Country: SA (occurrence: SA)
  Receive Date: 20190220
  Receipt Date: 20190220
  Transmission Date: 20190418
  Serious: Yes (Hospitalization, Other)
  Sender: FDA-Public Use
  Company Number: SA-ALEMBIC PHARMACUETICALS LIMITED-2019SCAL000102

PATIENT

DRUGS (2)
  1. RISPERIDONE. [Suspect]
     Active Substance: RISPERIDONE
     Indication: SUBSTANCE-INDUCED PSYCHOTIC DISORDER
     Dosage: 2 MILLIGRAM
  2. QUETIAPINE FUMARATE. [Suspect]
     Active Substance: QUETIAPINE FUMARATE
     Indication: SUBSTANCE-INDUCED PSYCHOTIC DISORDER
     Dosage: 100 MILLIGRAM

REACTIONS (12)
  - Muscle rigidity [Recovered/Resolved]
  - Mutism [Recovered/Resolved]
  - Gait disturbance [Recovered/Resolved]
  - Disorientation [Recovered/Resolved]
  - Pulmonary embolism [Unknown]
  - Embolism venous [Unknown]
  - Haemoptysis [Unknown]
  - Mental status changes [Recovered/Resolved]
  - Hyperhidrosis [Recovered/Resolved]
  - Confusional state [Recovered/Resolved]
  - Abnormal behaviour [Recovered/Resolved]
  - Neuroleptic malignant syndrome [Recovered/Resolved]
